FAERS Safety Report 7307520-0 (Version None)
Quarter: 2011Q1

REPORT INFORMATION
  Report Type: 
  Country: None (occurrence: None)
  Receive Date: 20110209
  Receipt Date: 20110201
  Transmission Date: 20110831
  Serious: Yes (Death, Other)
  Sender: FDA-Public Use
  Company Number: 2009SP021994

PATIENT
  Age: 27 Year
  Sex: Male
  Weight: 56 kg

DRUGS (50)
  1. RAMELTEON [Concomitant]
  2. TEGRETOL [Concomitant]
  3. PREDONINE [Concomitant]
  4. MAGNESIUM OXIDE [Concomitant]
  5. ALEVIATIN [Concomitant]
  6. MYSTAN [Concomitant]
  7. PHENYTOIN /00017402/ [Concomitant]
  8. MUCOSTA [Concomitant]
  9. DEPAKENE [Concomitant]
  10. TEMODAL [Suspect]
     Indication: ANAPLASTIC ASTROCYTOMA
     Dosage: (75 MG/M2; QD; PO) (150 MG/M2; QD; PO)(150 MG/M2; QD; PO)(150 MG/M2; QD; PO)(150 MG/M2; QD; PO)(150
     Route: 048
     Dates: start: 20070618, end: 20070622
  11. TEMODAL [Suspect]
     Indication: ANAPLASTIC ASTROCYTOMA
     Dosage: (75 MG/M2; QD; PO) (150 MG/M2; QD; PO)(150 MG/M2; QD; PO)(150 MG/M2; QD; PO)(150 MG/M2; QD; PO)(150
     Route: 048
     Dates: start: 20070716, end: 20070720
  12. TEMODAL [Suspect]
     Indication: ANAPLASTIC ASTROCYTOMA
     Dosage: (75 MG/M2; QD; PO) (150 MG/M2; QD; PO)(150 MG/M2; QD; PO)(150 MG/M2; QD; PO)(150 MG/M2; QD; PO)(150
     Route: 048
     Dates: start: 20080101, end: 20080105
  13. TEMODAL [Suspect]
     Indication: ANAPLASTIC ASTROCYTOMA
     Dosage: (75 MG/M2; QD; PO) (150 MG/M2; QD; PO)(150 MG/M2; QD; PO)(150 MG/M2; QD; PO)(150 MG/M2; QD; PO)(150
     Route: 048
     Dates: start: 20081202, end: 20081206
  14. TEMODAL [Suspect]
     Indication: ANAPLASTIC ASTROCYTOMA
     Dosage: (75 MG/M2; QD; PO) (150 MG/M2; QD; PO)(150 MG/M2; QD; PO)(150 MG/M2; QD; PO)(150 MG/M2; QD; PO)(150
     Route: 048
     Dates: start: 20090127, end: 20090131
  15. TEMODAL [Suspect]
     Indication: ANAPLASTIC ASTROCYTOMA
     Dosage: (75 MG/M2; QD; PO) (150 MG/M2; QD; PO)(150 MG/M2; QD; PO)(150 MG/M2; QD; PO)(150 MG/M2; QD; PO)(150
     Route: 048
     Dates: start: 20090714, end: 20090718
  16. TEMODAL [Suspect]
     Indication: ANAPLASTIC ASTROCYTOMA
     Dosage: (75 MG/M2; QD; PO) (150 MG/M2; QD; PO)(150 MG/M2; QD; PO)(150 MG/M2; QD; PO)(150 MG/M2; QD; PO)(150
     Route: 048
     Dates: start: 20091201, end: 20091205
  17. TEMODAL [Suspect]
     Indication: ANAPLASTIC ASTROCYTOMA
     Dosage: (75 MG/M2; QD; PO) (150 MG/M2; QD; PO)(150 MG/M2; QD; PO)(150 MG/M2; QD; PO)(150 MG/M2; QD; PO)(150
     Route: 048
     Dates: start: 20100330, end: 20100403
  18. TEMODAL [Suspect]
     Indication: ANAPLASTIC ASTROCYTOMA
     Dosage: (75 MG/M2; QD; PO) (150 MG/M2; QD; PO)(150 MG/M2; QD; PO)(150 MG/M2; QD; PO)(150 MG/M2; QD; PO)(150
     Route: 048
     Dates: start: 20071008, end: 20071012
  19. TEMODAL [Suspect]
     Indication: ANAPLASTIC ASTROCYTOMA
     Dosage: (75 MG/M2; QD; PO) (150 MG/M2; QD; PO)(150 MG/M2; QD; PO)(150 MG/M2; QD; PO)(150 MG/M2; QD; PO)(150
     Route: 048
     Dates: start: 20081104, end: 20081108
  20. TEMODAL [Suspect]
     Indication: ANAPLASTIC ASTROCYTOMA
     Dosage: (75 MG/M2; QD; PO) (150 MG/M2; QD; PO)(150 MG/M2; QD; PO)(150 MG/M2; QD; PO)(150 MG/M2; QD; PO)(150
     Route: 048
     Dates: start: 20090324, end: 20090328
  21. TEMODAL [Suspect]
     Indication: ANAPLASTIC ASTROCYTOMA
     Dosage: (75 MG/M2; QD; PO) (150 MG/M2; QD; PO)(150 MG/M2; QD; PO)(150 MG/M2; QD; PO)(150 MG/M2; QD; PO)(150
     Route: 048
     Dates: start: 20090519, end: 20090523
  22. TEMODAL [Suspect]
     Indication: ANAPLASTIC ASTROCYTOMA
     Dosage: (75 MG/M2; QD; PO) (150 MG/M2; QD; PO)(150 MG/M2; QD; PO)(150 MG/M2; QD; PO)(150 MG/M2; QD; PO)(150
     Route: 048
     Dates: start: 20100202, end: 20100206
  23. TEMODAL [Suspect]
     Indication: ANAPLASTIC ASTROCYTOMA
     Dosage: (75 MG/M2; QD; PO) (150 MG/M2; QD; PO)(150 MG/M2; QD; PO)(150 MG/M2; QD; PO)(150 MG/M2; QD; PO)(150
     Route: 048
     Dates: start: 20090811, end: 20090815
  24. TEMODAL [Suspect]
     Indication: ANAPLASTIC ASTROCYTOMA
     Dosage: (75 MG/M2; QD; PO) (150 MG/M2; QD; PO)(150 MG/M2; QD; PO)(150 MG/M2; QD; PO)(150 MG/M2; QD; PO)(150
     Route: 048
     Dates: start: 20070204, end: 20070325
  25. TEMODAL [Suspect]
     Indication: ANAPLASTIC ASTROCYTOMA
     Dosage: (75 MG/M2; QD; PO) (150 MG/M2; QD; PO)(150 MG/M2; QD; PO)(150 MG/M2; QD; PO)(150 MG/M2; QD; PO)(150
     Route: 048
     Dates: start: 20080715, end: 20080719
  26. TEMODAL [Suspect]
     Indication: ANAPLASTIC ASTROCYTOMA
     Dosage: (75 MG/M2; QD; PO) (150 MG/M2; QD; PO)(150 MG/M2; QD; PO)(150 MG/M2; QD; PO)(150 MG/M2; QD; PO)(150
     Route: 048
     Dates: start: 20081007, end: 20081011
  27. TEMODAL [Suspect]
     Indication: ANAPLASTIC ASTROCYTOMA
     Dosage: (75 MG/M2; QD; PO) (150 MG/M2; QD; PO)(150 MG/M2; QD; PO)(150 MG/M2; QD; PO)(150 MG/M2; QD; PO)(150
     Route: 048
     Dates: start: 20090616, end: 20090620
  28. TEMODAL [Suspect]
     Indication: ANAPLASTIC ASTROCYTOMA
     Dosage: (75 MG/M2; QD; PO) (150 MG/M2; QD; PO)(150 MG/M2; QD; PO)(150 MG/M2; QD; PO)(150 MG/M2; QD; PO)(150
     Route: 048
     Dates: start: 20091006, end: 20091010
  29. TEMODAL [Suspect]
     Indication: ANAPLASTIC ASTROCYTOMA
     Dosage: (75 MG/M2; QD; PO) (150 MG/M2; QD; PO)(150 MG/M2; QD; PO)(150 MG/M2; QD; PO)(150 MG/M2; QD; PO)(150
     Route: 048
     Dates: start: 20100302, end: 20100306
  30. TEMODAL [Suspect]
     Indication: ANAPLASTIC ASTROCYTOMA
     Dosage: (75 MG/M2; QD; PO) (150 MG/M2; QD; PO)(150 MG/M2; QD; PO)(150 MG/M2; QD; PO)(150 MG/M2; QD; PO)(150
     Route: 048
     Dates: start: 20070423, end: 20070427
  31. TEMODAL [Suspect]
     Indication: ANAPLASTIC ASTROCYTOMA
     Dosage: (75 MG/M2; QD; PO) (150 MG/M2; QD; PO)(150 MG/M2; QD; PO)(150 MG/M2; QD; PO)(150 MG/M2; QD; PO)(150
     Route: 048
     Dates: start: 20070813, end: 20070817
  32. TEMODAL [Suspect]
     Indication: ANAPLASTIC ASTROCYTOMA
     Dosage: (75 MG/M2; QD; PO) (150 MG/M2; QD; PO)(150 MG/M2; QD; PO)(150 MG/M2; QD; PO)(150 MG/M2; QD; PO)(150
     Route: 048
     Dates: start: 20070910, end: 20070914
  33. TEMODAL [Suspect]
     Indication: ANAPLASTIC ASTROCYTOMA
     Dosage: (75 MG/M2; QD; PO) (150 MG/M2; QD; PO)(150 MG/M2; QD; PO)(150 MG/M2; QD; PO)(150 MG/M2; QD; PO)(150
     Route: 048
     Dates: start: 20080909, end: 20080913
  34. TEMODAL [Suspect]
     Indication: ANAPLASTIC ASTROCYTOMA
     Dosage: (75 MG/M2; QD; PO) (150 MG/M2; QD; PO)(150 MG/M2; QD; PO)(150 MG/M2; QD; PO)(150 MG/M2; QD; PO)(150
     Route: 048
     Dates: start: 20100427, end: 20100501
  35. TEMODAL [Suspect]
     Indication: ANAPLASTIC ASTROCYTOMA
     Dosage: (75 MG/M2; QD; PO) (150 MG/M2; QD; PO)(150 MG/M2; QD; PO)(150 MG/M2; QD; PO)(150 MG/M2; QD; PO)(150
     Route: 048
     Dates: start: 20080617, end: 20080621
  36. TEMODAL [Suspect]
     Indication: ANAPLASTIC ASTROCYTOMA
     Dosage: (75 MG/M2; QD; PO) (150 MG/M2; QD; PO)(150 MG/M2; QD; PO)(150 MG/M2; QD; PO)(150 MG/M2; QD; PO)(150
     Route: 048
     Dates: start: 20090421, end: 20090425
  37. TEMODAL [Suspect]
     Indication: ANAPLASTIC ASTROCYTOMA
     Dosage: (75 MG/M2; QD; PO) (150 MG/M2; QD; PO)(150 MG/M2; QD; PO)(150 MG/M2; QD; PO)(150 MG/M2; QD; PO)(150
     Route: 048
     Dates: start: 20090908, end: 20090912
  38. TEMODAL [Suspect]
     Indication: ANAPLASTIC ASTROCYTOMA
     Dosage: (75 MG/M2; QD; PO) (150 MG/M2; QD; PO)(150 MG/M2; QD; PO)(150 MG/M2; QD; PO)(150 MG/M2; QD; PO)(150
     Route: 048
     Dates: start: 20091103, end: 20091107
  39. TEMODAL [Suspect]
     Indication: ANAPLASTIC ASTROCYTOMA
     Dosage: (75 MG/M2; QD; PO) (150 MG/M2; QD; PO)(150 MG/M2; QD; PO)(150 MG/M2; QD; PO)(150 MG/M2; QD; PO)(150
     Route: 048
     Dates: start: 20091229, end: 20100102
  40. TEMODAL [Suspect]
     Indication: ANAPLASTIC ASTROCYTOMA
     Dosage: (75 MG/M2; QD; PO) (150 MG/M2; QD; PO)(150 MG/M2; QD; PO)(150 MG/M2; QD; PO)(150 MG/M2; QD; PO)(150
     Route: 048
     Dates: start: 20080226, end: 20080301
  41. TEMODAL [Suspect]
     Indication: ANAPLASTIC ASTROCYTOMA
     Dosage: (75 MG/M2; QD; PO) (150 MG/M2; QD; PO)(150 MG/M2; QD; PO)(150 MG/M2; QD; PO)(150 MG/M2; QD; PO)(150
     Route: 048
     Dates: start: 20080325, end: 20080329
  42. TEMODAL [Suspect]
     Indication: ANAPLASTIC ASTROCYTOMA
     Dosage: (75 MG/M2; QD; PO) (150 MG/M2; QD; PO)(150 MG/M2; QD; PO)(150 MG/M2; QD; PO)(150 MG/M2; QD; PO)(150
     Route: 048
     Dates: start: 20080422, end: 20080426
  43. TEMODAL [Suspect]
     Indication: ANAPLASTIC ASTROCYTOMA
     Dosage: (75 MG/M2; QD; PO) (150 MG/M2; QD; PO)(150 MG/M2; QD; PO)(150 MG/M2; QD; PO)(150 MG/M2; QD; PO)(150
     Route: 048
     Dates: start: 20080812, end: 20080816
  44. TEMODAL [Suspect]
     Indication: ANAPLASTIC ASTROCYTOMA
     Dosage: (75 MG/M2; QD; PO) (150 MG/M2; QD; PO)(150 MG/M2; QD; PO)(150 MG/M2; QD; PO)(150 MG/M2; QD; PO)(150
     Route: 048
     Dates: start: 20081230, end: 20090103
  45. TEMODAL [Suspect]
     Indication: ANAPLASTIC ASTROCYTOMA
     Dosage: (75 MG/M2; QD; PO) (150 MG/M2; QD; PO)(150 MG/M2; QD; PO)(150 MG/M2; QD; PO)(150 MG/M2; QD; PO)(150
     Route: 048
     Dates: start: 20070521, end: 20070525
  46. TEMODAL [Suspect]
     Indication: ANAPLASTIC ASTROCYTOMA
     Dosage: (75 MG/M2; QD; PO) (150 MG/M2; QD; PO)(150 MG/M2; QD; PO)(150 MG/M2; QD; PO)(150 MG/M2; QD; PO)(150
     Route: 048
     Dates: start: 20071106, end: 20071110
  47. TEMODAL [Suspect]
     Indication: ANAPLASTIC ASTROCYTOMA
     Dosage: (75 MG/M2; QD; PO) (150 MG/M2; QD; PO)(150 MG/M2; QD; PO)(150 MG/M2; QD; PO)(150 MG/M2; QD; PO)(150
     Route: 048
     Dates: start: 20071204, end: 20071208
  48. TEMODAL [Suspect]
     Indication: ANAPLASTIC ASTROCYTOMA
     Dosage: (75 MG/M2; QD; PO) (150 MG/M2; QD; PO)(150 MG/M2; QD; PO)(150 MG/M2; QD; PO)(150 MG/M2; QD; PO)(150
     Route: 048
     Dates: start: 20080129, end: 20080202
  49. TEMODAL [Suspect]
     Indication: ANAPLASTIC ASTROCYTOMA
     Dosage: (75 MG/M2; QD; PO) (150 MG/M2; QD; PO)(150 MG/M2; QD; PO)(150 MG/M2; QD; PO)(150 MG/M2; QD; PO)(150
     Route: 048
     Dates: start: 20080520, end: 20080524
  50. TEMODAL [Suspect]
     Indication: ANAPLASTIC ASTROCYTOMA
     Dosage: (75 MG/M2; QD; PO) (150 MG/M2; QD; PO)(150 MG/M2; QD; PO)(150 MG/M2; QD; PO)(150 MG/M2; QD; PO)(150
     Route: 048
     Dates: start: 20090224, end: 20090228

REACTIONS (2)
  - HYPERURICAEMIA [None]
  - LYMPHOCYTE COUNT DECREASED [None]
